FAERS Safety Report 17951690 (Version 1)
Quarter: 2020Q2

REPORT INFORMATION
  Report Type: Spontaneous
  Country: FR (occurrence: FR)
  Receive Date: 20200626
  Receipt Date: 20200626
  Transmission Date: 20200714
  Serious: Yes (Death)
  Sender: FDA-Public Use
  Company Number: FR-JNJFOC-20200631926

PATIENT
  Age: 60 Year
  Sex: Female
  Weight: 51 kg

DRUGS (15)
  1. DAFALGAN [Concomitant]
     Active Substance: ACETAMINOPHEN
     Dosage: 500 MG
  2. BRICANYL [Concomitant]
     Active Substance: TERBUTALINE SULFATE
  3. BACLOFENE [Concomitant]
     Active Substance: BACLOFEN
  4. DIFFU K [Concomitant]
     Active Substance: POTASSIUM CHLORIDE
  5. PLAQUENIL                          /00072602/ [Concomitant]
     Active Substance: HYDROXYCHLOROQUINE DIPHOSPHATE
  6. FORLAX [Concomitant]
     Active Substance: POLYETHYLENE GLYCOL 4000
  7. COLECALCIFEROL [Concomitant]
     Active Substance: CHOLECALCIFEROL
  8. PHLOROGLUCINOL W/TRIMETHYLPHLOROGLUCINOL [Concomitant]
     Active Substance: PHLOROGLUCINOL\1,3,5-TRIMETHOXYBENZENE
  9. CALCIUM CARBONATE. [Concomitant]
     Active Substance: CALCIUM CARBONATE
  10. ATENOLOL. [Concomitant]
     Active Substance: ATENOLOL
  11. NICOPATCH [Concomitant]
     Active Substance: NICOTINE
  12. RIVAROXABAN [Suspect]
     Active Substance: RIVAROXABAN
     Indication: ANTICOAGULANT THERAPY
     Dosage: 20 MG, QD
     Route: 048
     Dates: end: 20180515
  13. AMLOR [Concomitant]
     Active Substance: AMLODIPINE BESYLATE
  14. VERSATIS [Concomitant]
     Active Substance: LIDOCAINE
  15. PANTOPRAZOLE [Concomitant]
     Active Substance: PANTOPRAZOLE

REACTIONS (2)
  - Pelvic haemorrhage [Fatal]
  - Pelvic fluid collection [Fatal]
